FAERS Safety Report 9997837 (Version 3)
Quarter: 2014Q2

REPORT INFORMATION
  Report Type: Spontaneous
  Country: US (occurrence: US)
  Receive Date: 20140311
  Receipt Date: 20140410
  Transmission Date: 20141212
  Serious: Yes (Hospitalization, Other)
  Sender: FDA-Public Use
  Company Number: US-FRI-1000054788

PATIENT
  Age: 60 Year
  Sex: Male

DRUGS (6)
  1. TUDORZA PRESSAIR [Suspect]
     Indication: CHRONIC OBSTRUCTIVE PULMONARY DISEASE
     Dosage: 800 MCG
     Route: 055
     Dates: start: 20140212, end: 20140225
  2. OXYGEN [Concomitant]
     Indication: CHRONIC OBSTRUCTIVE PULMONARY DISEASE
     Dosage: 3 LITERS
  3. CHOLESTEROL PILL NOS [Concomitant]
  4. ASPIRIN [Concomitant]
  5. MVI [Concomitant]
  6. VITAMIN E [Concomitant]

REACTIONS (9)
  - Dyspnoea [Not Recovered/Not Resolved]
  - Blood pressure decreased [Recovered/Resolved]
  - Lung disorder [Not Recovered/Not Resolved]
  - Headache [Unknown]
  - Cough [Unknown]
  - Decreased appetite [Unknown]
  - Vision blurred [Unknown]
  - Ocular hyperaemia [Unknown]
  - Chills [Unknown]
